FAERS Safety Report 9972980 (Version 1)
Quarter: 2014Q1

REPORT INFORMATION
  Report Type: Spontaneous
  Country: US (occurrence: US)
  Receive Date: 20140306
  Receipt Date: 20140306
  Transmission Date: 20141002
  Serious: Yes (Hospitalization, Other)
  Sender: FDA-Public Use
  Company Number: US-PFIZER INC-2014059753

PATIENT
  Age: 24 Year
  Sex: Female

DRUGS (1)
  1. MYCOPHENOLATE MOFETIL [Suspect]
     Dosage: UNK

REACTIONS (8)
  - Sepsis [Unknown]
  - Pneumonia respiratory syncytial viral [Unknown]
  - Graft versus host disease in intestine [Unknown]
  - Histoplasmosis disseminated [Unknown]
  - Renal failure [Recovering/Resolving]
  - Infection [Unknown]
  - Coombs positive haemolytic anaemia [Unknown]
  - Hypokalaemia [Recovering/Resolving]
